FAERS Safety Report 20988786 (Version 1)
Quarter: 2022Q2

REPORT INFORMATION
  Report Type: Spontaneous
  Country: FI (occurrence: FI)
  Receive Date: 20220621
  Receipt Date: 20220621
  Transmission Date: 20220720
  Serious: Yes (Life-Threatening)
  Sender: FDA-Public Use
  Company Number: FI-Gedeon Richter Plc.-2022_GR_004507

PATIENT
  Sex: Male

DRUGS (2)
  1. CARIPRAZINE HYDROCHLORIDE [Suspect]
     Active Substance: CARIPRAZINE HYDROCHLORIDE
     Indication: Schizophrenia
     Dosage: 1.5 MG, QD
     Route: 048
     Dates: start: 202203, end: 20220525
  2. OLANZAPIN RATIOPHARM [Concomitant]
     Indication: Schizophrenia
     Dosage: 15 MG, QD
     Route: 048

REACTIONS (2)
  - Diarrhoea [Recovering/Resolving]
  - Pharyngeal oedema [Recovering/Resolving]

NARRATIVE: CASE EVENT DATE: 20220525
